FAERS Safety Report 6841559-4 (Version None)
Quarter: 2010Q3

REPORT INFORMATION
  Report Type: 
  Country: None (occurrence: None)
  Receive Date: 20100714
  Receipt Date: 20090414
  Transmission Date: 20110219
  Serious: Yes (Other)
  Sender: FDA-Public Use
  Company Number: US-PFIZER INC-2007051851

PATIENT
  Sex: Female
  Weight: 68.2 kg

DRUGS (4)
  1. CHANTIX [Suspect]
     Indication: SMOKING CESSATION THERAPY
     Route: 048
     Dates: start: 20070611, end: 20070616
  2. CITALOPRAM [Interacting]
     Indication: ANXIETY
     Dosage: 7 MG, 1X/DAY
     Route: 048
     Dates: start: 20070609, end: 20070611
  3. CITALOPRAM [Interacting]
     Indication: DEPRESSION
  4. TOBACCO [Interacting]

REACTIONS (12)
  - ANXIETY [None]
  - BACK PAIN [None]
  - BURNING SENSATION [None]
  - DRUG INTERACTION [None]
  - DRUG TOXICITY [None]
  - INSOMNIA [None]
  - NAUSEA [None]
  - NERVE COMPRESSION [None]
  - NEURALGIA [None]
  - PAIN [None]
  - PALPITATIONS [None]
  - VERTIGO [None]
